FAERS Safety Report 23645905 (Version 1)
Quarter: 2024Q1

REPORT INFORMATION
  Report Type: Spontaneous
  Country: ES (occurrence: None)
  Receive Date: 20240319
  Receipt Date: 20240319
  Transmission Date: 20240410
  Serious: Yes (Hospitalization)
  Sender: FDA-Public Use
  Company Number: ES-SUPERNUS Pharmaceuticals, Inc.-SUP202403-000873

PATIENT
  Age: 59 Year
  Sex: Male

DRUGS (4)
  1. OXCARBAZEPINE [Suspect]
     Active Substance: OXCARBAZEPINE
     Indication: Product used for unknown indication
     Dosage: DIVIDED IN 4 DAILY DOSES
  2. AMITRIPTYLINE [Concomitant]
     Active Substance: AMITRIPTYLINE
     Dosage: IN 1 DOSE
  3. PHENYTOIN [Concomitant]
     Active Substance: PHENYTOIN
     Dosage: DIVIDED IN 2 DAILY DOSES
  4. LEVETIRACETAM [Concomitant]
     Active Substance: LEVETIRACETAM
     Dosage: DIVIDED IN 3 DAILY DOSES

REACTIONS (4)
  - Toxicity to various agents [Recovered/Resolved]
  - Nystagmus [Recovered/Resolved]
  - Somnolence [Recovered/Resolved]
  - Ataxia [Recovered/Resolved]
